FAERS Safety Report 22307592 (Version 1)
Quarter: 2023Q2

REPORT INFORMATION
  Report Type: Spontaneous
  Country: US (occurrence: None)
  Receive Date: 20230511
  Receipt Date: 20230511
  Transmission Date: 20230722
  Serious: No
  Sender: FDA-Public Use
  Company Number: US-ROCHE-3153230

PATIENT
  Age: 57 Year
  Sex: Male

DRUGS (1)
  1. OCREVUS [Suspect]
     Active Substance: OCRELIZUMAB
     Indication: Relapsing-remitting multiple sclerosis
     Route: 065

REACTIONS (5)
  - Laboratory test abnormal [Unknown]
  - B-lymphocyte count decreased [Unknown]
  - Immunoglobulins decreased [Unknown]
  - Blood immunoglobulin G decreased [Unknown]
  - CD19 lymphocytes decreased [Unknown]
